FAERS Safety Report 19510545 (Version 1)
Quarter: 2021Q3

REPORT INFORMATION
  Report Type: Spontaneous
  Country: GR (occurrence: GR)
  Receive Date: 20210709
  Receipt Date: 20210709
  Transmission Date: 20211014
  Serious: Yes (Other)
  Sender: FDA-Public Use
  Company Number: GR-GLAXOSMITHKLINE-GR2021148260

PATIENT
  Age: 40 Year
  Sex: Male
  Weight: 110 kg

DRUGS (2)
  1. SERETIDE [Suspect]
     Active Substance: FLUTICASONE PROPIONATE\SALMETEROL XINAFOATE
     Indication: ASTHMA
     Dosage: INHALATION X 2 (TWICE DAY)
     Route: 055
     Dates: start: 20200401, end: 20201201
  2. TILDIEM [Concomitant]
     Active Substance: DILTIAZEM HYDROCHLORIDE
     Indication: TACHYCARDIA
     Dosage: 400 MG, BID 200 MG X 2 (1 X 2)
     Route: 048
     Dates: start: 20200401, end: 20201201

REACTIONS (3)
  - Weight increased [Recovering/Resolving]
  - Tendonitis [Recovered/Resolved]
  - Tachycardia [Recovered/Resolved]

NARRATIVE: CASE EVENT DATE: 20200501
